FAERS Safety Report 5914840-0 (Version None)
Quarter: 2008Q4

REPORT INFORMATION
  Report Type: 
  Country: None (occurrence: None)
  Receive Date: 20081010
  Receipt Date: 20081001
  Transmission Date: 20090506
  Serious: Yes (Hospitalization)
  Sender: FDA-Public Use
  Company Number: PHHY2008JP23419

PATIENT

DRUGS (1)
  1. DIOVAN T30230+TAB+HY [Suspect]

REACTIONS (1)
  - ATRIAL FIBRILLATION [None]
